FAERS Safety Report 8632647 (Version 3)
Quarter: 2013Q2

REPORT INFORMATION
  Report Type: Spontaneous
  Country: US (occurrence: US)
  Receive Date: 20120625
  Receipt Date: 20130410
  Transmission Date: 20140414
  Serious: Yes (Hospitalization, Other)
  Sender: FDA-Public Use
  Company Number: US-ELI_LILLY_AND_COMPANY-US201104006648

PATIENT
  Age: 60 Year
  Sex: Female

DRUGS (7)
  1. FORTEO [Suspect]
     Indication: OSTEOPOROSIS
     Dosage: 20 UG, QD
     Route: 065
     Dates: start: 201010
  2. FORTEO [Suspect]
     Dosage: 20 UG, QD
     Route: 065
     Dates: end: 201206
  3. FORTEO [Suspect]
     Dosage: 20 UG, QD
     Route: 065
  4. FORTEO [Suspect]
     Dosage: 20 UG, QD
     Route: 065
  5. FORTEO [Suspect]
     Dosage: 20 UG, QD
     Route: 065
     Dates: start: 201303
  6. THERAFLU [Concomitant]
  7. CELEXA [Concomitant]

REACTIONS (19)
  - Back pain [Unknown]
  - Blood sodium decreased [Unknown]
  - Bladder discomfort [Unknown]
  - Urinary tract infection [Unknown]
  - Hip fracture [Unknown]
  - Anaemia [Unknown]
  - Sleep disorder due to a general medical condition [Unknown]
  - Sinus disorder [Unknown]
  - Sinus congestion [Not Recovered/Not Resolved]
  - Pain [Not Recovered/Not Resolved]
  - Injection site pain [Recovered/Resolved]
  - Nausea [Recovered/Resolved]
  - Muscle spasms [Unknown]
  - Drug dose omission [Unknown]
  - Malaise [Unknown]
  - Pain [Unknown]
  - Arthralgia [Unknown]
  - Fall [Unknown]
  - Pain [Unknown]
